FAERS Safety Report 7475661-3 (Version None)
Quarter: 2011Q2

REPORT INFORMATION
  Report Type: 
  Country: None (occurrence: None)
  Receive Date: 20110512
  Receipt Date: 20110504
  Transmission Date: 20111010
  Serious: Yes (Hospitalization, Other)
  Sender: FDA-Public Use
  Company Number: US-TEVA-278554USA

PATIENT
  Sex: Male

DRUGS (13)
  1. IBUPROFEN [Concomitant]
  2. FOLIC ACID [Concomitant]
  3. AMLODIPINE BESYLATE [Concomitant]
  4. VITAMIN B12 NOS [Concomitant]
  5. TAMSULOSIN HCL [Concomitant]
  6. SENNA ALEXANDRINA [Concomitant]
  7. METOPROLOL SUCCINATE [Concomitant]
  8. TIOTROPIUM BROMIDE [Concomitant]
  9. PROAIR HFA [Suspect]
     Indication: CHRONIC OBSTRUCTIVE PULMONARY DISEASE
     Route: 055
  10. METOPROLOL TARTRATE [Concomitant]
  11. PATNYTOINEX^ [Concomitant]
  12. SERETIDE                           /01420901/ [Concomitant]
  13. MULTI-VITAMINS [Concomitant]

REACTIONS (4)
  - NASAL CONGESTION [None]
  - DYSPNOEA [None]
  - CONVULSION [None]
  - DRUG INEFFECTIVE [None]
